FAERS Safety Report 5368868-2 (Version None)
Quarter: 2007Q2

REPORT INFORMATION
  Report Type: 
  Country: None (occurrence: None)
  Receive Date: 20070625
  Receipt Date: 20070501
  Transmission Date: 20071010
  Serious: No
  Sender: FDA-Public Use
  Company Number: US-ASTRAZENECA-2004UW25173

PATIENT
  Age: 720 Month
  Sex: Male
  Weight: 88 kg

DRUGS (9)
  1. CRESTOR [Suspect]
     Indication: BLOOD CHOLESTEROL INCREASED
     Route: 048
     Dates: start: 20040601, end: 20041001
  2. CRESTOR [Suspect]
     Route: 048
     Dates: start: 20050101, end: 20070424
  3. METOPROLOL SUCCINATE [Concomitant]
  4. AMITRIPTYLINE HCL [Concomitant]
  5. AVAPRO [Concomitant]
  6. ASPIRIN [Concomitant]
  7. MULTI-VITAMIN [Concomitant]
  8. HYDROCHLOROTHIAZIDE [Concomitant]
  9. CORTISONE ACETATE [Concomitant]

REACTIONS (3)
  - BACK PAIN [None]
  - PAIN IN EXTREMITY [None]
  - SCIATICA [None]
